FAERS Safety Report 5943047-6 (Version None)
Quarter: 2008Q4

REPORT INFORMATION
  Report Type: 
  Country: None (occurrence: None)
  Receive Date: 20081106
  Receipt Date: 20081028
  Transmission Date: 20090506
  Serious: Yes (Hospitalization, Other)
  Sender: FDA-Public Use
  Company Number: US-AMGEN-QUU315946

PATIENT
  Sex: Female

DRUGS (2)
  1. ENBREL [Suspect]
     Indication: RHEUMATOID ARTHRITIS
     Route: 058
     Dates: start: 20080307, end: 20080918
  2. METHOTREXATE [Concomitant]
     Route: 058

REACTIONS (8)
  - BRONCHITIS [None]
  - DEHYDRATION [None]
  - EYE INFECTION BACTERIAL [None]
  - HEADACHE [None]
  - HERPES ZOSTER [None]
  - HYPERAESTHESIA [None]
  - PHOTOSENSITIVITY REACTION [None]
  - VOMITING [None]
